FAERS Safety Report 9268880 (Version 2)
Quarter: 2013Q2

REPORT INFORMATION
  Report Type: Spontaneous
  Country: US (occurrence: US)
  Receive Date: 20130503
  Receipt Date: 20130521
  Transmission Date: 20140414
  Serious: Yes (Hospitalization, Other)
  Sender: FDA-Public Use
  Company Number: US-AMGEN-USASP2013030604

PATIENT
  Age: 22 Year
  Sex: Female
  Weight: 63.49 kg

DRUGS (10)
  1. ENBREL [Suspect]
     Indication: RHEUMATOID ARTHRITIS
     Dosage: 50 MG, QWK
     Route: 058
  2. ENBREL [Suspect]
     Indication: ANKYLOSING SPONDYLITIS
  3. HUMIRA [Concomitant]
     Indication: RHEUMATOID ARTHRITIS
     Dosage: 40 MG, Q2WK
     Dates: start: 200605
  4. HUMIRA [Concomitant]
     Indication: ANKYLOSING SPONDYLITIS
  5. ACTEMRA [Concomitant]
     Dosage: UNK
  6. CELEBREX [Concomitant]
     Indication: RHEUMATOID ARTHRITIS
     Dosage: 100 MG, UNK
  7. FISH OIL [Concomitant]
     Dosage: UNK
  8. MULTIVITAMINS, PLAIN [Concomitant]
     Dosage: UNK
  9. PROBIOTIC                          /06395501/ [Concomitant]
     Dosage: UNK
  10. TRIFLEX                            /01550301/ [Concomitant]
     Dosage: UNK

REACTIONS (11)
  - Pelvic inflammatory disease [Recovered/Resolved]
  - Nausea [Recovered/Resolved]
  - Vomiting [Recovered/Resolved]
  - Chills [Unknown]
  - Sluggishness [Unknown]
  - Fatigue [Unknown]
  - Arthralgia [Unknown]
  - Alopecia [Recovered/Resolved]
  - Skin wound [Recovered/Resolved]
  - Injection site pain [Unknown]
  - Injection site urticaria [Unknown]
